FAERS Safety Report 8664353 (Version 6)
Quarter: 2012Q4

REPORT INFORMATION
  Report Type: 
  Country: JP (occurrence: JP)
  Receive Date: 20120713
  Receipt Date: 20121204
  Transmission Date: 20130627
  Serious: Yes (Death, Other)
  Sender: FDA-Public Use
  Company Number: JP-BRISTOL-MYERS SQUIBB COMPANY-16753584

PATIENT
  Age: 31 Year
  Sex: Male
  Weight: 59 kg

DRUGS (8)
  1. ABILIFY DISCMELT TABS [Suspect]
     Indication: SCHIZOPHRENIA
     Route: 048
     Dates: start: 20120623, end: 20120629
  2. RISPERDAL [Suspect]
     Indication: SCHIZOPHRENIA
     Dosage: 4mg: 4Jun-11Jun12(8days)
2mg:12Jun-29Jun12(18days)
     Route: 048
     Dates: start: 20120604, end: 20120629
  3. LEVOTOMIN [Suspect]
     Indication: SCHIZOPHRENIA
     Route: 048
     Dates: start: 201206, end: 20120629
  4. ROHYPNOL [Suspect]
     Indication: SCHIZOPHRENIA
     Route: 048
     Dates: start: 201206, end: 20120629
  5. METHOTRIMEPRAZINE MALEATE [Suspect]
  6. HIBERNA [Concomitant]
     Dates: start: 20120612, end: 20120629
  7. CERCINE [Concomitant]
     Dates: start: 20120612, end: 20120629
  8. MIYA-BM [Concomitant]
     Dates: start: 20120623

REACTIONS (5)
  - Pneumonia staphylococcal [Fatal]
  - Acute respiratory distress syndrome [Fatal]
  - Eosinophilic pneumonia [Unknown]
  - Pulmonary alveolar haemorrhage [Unknown]
  - Neuroleptic malignant syndrome [Unknown]
